FAERS Safety Report 4961677-5 (Version None)
Quarter: 2006Q2

REPORT INFORMATION
  Report Type: 
  Country: None (occurrence: None)
  Receive Date: 20060404
  Receipt Date: 20060322
  Transmission Date: 20061013
  Serious: Yes (Hospitalization)
  Sender: FDA-Public Use
  Company Number: PHEH2006US03804

PATIENT
  Age: 18 Year
  Sex: Female

DRUGS (1)
  1. EXJADE [Suspect]
     Indication: BLOOD IRON INCREASED
     Dosage: 1250 MG, QD
     Dates: start: 20060302, end: 20060315

REACTIONS (3)
  - PRURITUS [None]
  - RASH GENERALISED [None]
  - SICKLE CELL ANAEMIA WITH CRISIS [None]
